FAERS Safety Report 5562912-5 (Version None)
Quarter: 2007Q4

REPORT INFORMATION
  Report Type: 
  Country: None (occurrence: None)
  Receive Date: 20071212
  Receipt Date: 20071212
  Transmission Date: 20080405
  Serious: Yes (Hospitalization)
  Sender: FDA-Public Use
  Company Number: None

PATIENT
  Age: 87 Year
  Sex: Male

DRUGS (2)
  1. SIMVASTATIN [Suspect]
     Indication: HYPERLIPIDAEMIA
     Dosage: 40MG  EVERY DAY  PO
     Route: 048
     Dates: start: 20050204, end: 20071120
  2. LISINOPRIL [Suspect]
     Indication: HYPERTENSION
     Dosage: 20MG  EVERY DAY  PO
     Route: 048
     Dates: start: 20070407, end: 20071120

REACTIONS (2)
  - RENAL FAILURE ACUTE [None]
  - RHABDOMYOLYSIS [None]
